FAERS Safety Report 9330214 (Version 1)
Quarter: 2013Q2

REPORT INFORMATION
  Report Type: Spontaneous
  Country: PR (occurrence: PR)
  Receive Date: 20130604
  Receipt Date: 20130604
  Transmission Date: 20140414
  Serious: No
  Sender: FDA-Public Use
  Company Number: PR-B.I. PHARMACEUTICALS,INC./RIDGEFIELD-2013-BI-15239BP

PATIENT
  Sex: Male

DRUGS (1)
  1. MICARDIS [Suspect]
     Route: 048

REACTIONS (1)
  - Blood pressure diastolic increased [Unknown]
